FAERS Safety Report 19934699 (Version 2)
Quarter: 2021Q4

REPORT INFORMATION
  Report Type: Spontaneous
  Country: US (occurrence: US)
  Receive Date: 20211008
  Receipt Date: 20211013
  Transmission Date: 20220303
  Serious: No
  Sender: FDA-Public Use
  Company Number: US-BAUSCH-BL-2019-002138

PATIENT
  Age: 67 Year
  Sex: Female

DRUGS (2)
  1. JUBLIA [Suspect]
     Active Substance: EFINACONAZOLE
     Indication: Onychomycosis
     Dosage: DOSE: 1
     Route: 061
     Dates: start: 20190120
  2. JUBLIA [Suspect]
     Active Substance: EFINACONAZOLE
     Route: 061
     Dates: start: 202103

REACTIONS (7)
  - Vision blurred [Unknown]
  - Alopecia [Unknown]
  - Paraesthesia [Unknown]
  - Heart rate irregular [Unknown]
  - Dry skin [Unknown]
  - Product use in unapproved indication [Unknown]
  - Product prescribing error [Unknown]

NARRATIVE: CASE EVENT DATE: 20190120
